FAERS Safety Report 17469535 (Version 1)
Quarter: 2020Q1

REPORT INFORMATION
  Report Type: Spontaneous
  Country: CH (occurrence: CH)
  Receive Date: 20200227
  Receipt Date: 20200227
  Transmission Date: 20200409
  Serious: Yes (Hospitalization, Other)
  Sender: FDA-Public Use
  Company Number: CH-SHIRE-CH202007088

PATIENT

DRUGS (6)
  1. TAGRISSO [Concomitant]
     Active Substance: OSIMERTINIB
     Indication: LUNG ADENOCARCINOMA
  2. ACTILYSE [Suspect]
     Active Substance: ALTEPLASE
     Indication: VASCULAR STENT STENOSIS
     Route: 050
  3. PLAVIX [Suspect]
     Active Substance: CLOPIDOGREL BISULFATE
     Indication: STENT PLACEMENT
     Route: 048
  4. XAGRID [Suspect]
     Active Substance: ANAGRELIDE HYDROCHLORIDE
     Indication: THROMBOCYTOSIS
     Dosage: UNK
     Route: 065
  5. ASPIRIN CARDIO [Suspect]
     Active Substance: ASPIRIN
     Indication: STENT PLACEMENT
     Route: 048
  6. HEPARIN [Suspect]
     Active Substance: HEPARIN SODIUM
     Indication: VASCULAR STENT STENOSIS
     Dosage: UNK
     Route: 041

REACTIONS (2)
  - Shock haemorrhagic [Recovering/Resolving]
  - Retroperitoneal haemorrhage [Recovering/Resolving]

NARRATIVE: CASE EVENT DATE: 20191215
